FAERS Safety Report 25670021 (Version 1)
Quarter: 2025Q3

REPORT INFORMATION
  Report Type: Spontaneous
  Country: US (occurrence: None)
  Receive Date: 20250811
  Receipt Date: 20250811
  Transmission Date: 20251020
  Serious: Yes (Death)
  Sender: FDA-CTU
  Company Number: None

PATIENT
  Age: 63 Year
  Sex: Female

DRUGS (2)
  1. PROGRAF [Suspect]
     Active Substance: TACROLIMUS
     Indication: Renal transplant failure
     Dosage: 0.5 MG DAILY ORAL ?
     Route: 048
     Dates: start: 20230519
  2. PROGRAF [Suspect]
     Active Substance: TACROLIMUS
     Indication: Renal transplant failure
     Dosage: 1 MG  DAILY ORAL
     Route: 048
     Dates: start: 20230519

REACTIONS (2)
  - Myocardial infarction [None]
  - Dialysis [None]

NARRATIVE: CASE EVENT DATE: 20250701
